FAERS Safety Report 5019391-6 (Version None)
Quarter: 2006Q2

REPORT INFORMATION
  Report Type: 
  Country: None (occurrence: None)
  Receive Date: 20060531
  Receipt Date: 20060519
  Transmission Date: 20061013
  Serious: Yes (Death, Hospitalization)
  Sender: FDA-Public Use
  Company Number: 2006050317

PATIENT
  Age: 70 Year
  Sex: Female

DRUGS (6)
  1. AZULFIDINE EN-TABS [Suspect]
     Indication: RHEUMATOID ARTHRITIS
     Dosage: 1 GRAM (500 MG, 2 IN 1 D), ORAL
     Route: 048
     Dates: start: 20060105, end: 20060109
  2. DRUG UNSPECIFIED [Concomitant]
  3. MOVER (ACTARIT) [Concomitant]
  4. PREDNISOLONE [Concomitant]
  5. HERBAL PREPARATION (HERBAL PREPARATION) [Concomitant]
  6. HERBAL PREPARATION (HERBAL PREPARATION) [Concomitant]

REACTIONS (13)
  - ANTINEUTROPHIL CYTOPLASMIC ANTIBODY POSITIVE [None]
  - DIVERTICULITIS INTESTINAL HAEMORRHAGIC [None]
  - DIZZINESS [None]
  - HAEMODIALYSIS [None]
  - HAEMOGLOBIN DECREASED [None]
  - NAUSEA [None]
  - PLATELET COUNT DECREASED [None]
  - PNEUMONIA [None]
  - PROTEIN URINE [None]
  - RASH [None]
  - RENAL IMPAIRMENT [None]
  - RESPIRATORY FAILURE [None]
  - VASCULITIS [None]
